FAERS Safety Report 9915204 (Version 1)
Quarter: 2014Q1

REPORT INFORMATION
  Report Type: Spontaneous
  Country: US (occurrence: US)
  Receive Date: 20140220
  Receipt Date: 20140220
  Transmission Date: 20141002
  Serious: Yes (Death, Other)
  Sender: FDA-Public Use
  Company Number: US-AMGEN-USASP2014012104

PATIENT
  Age: 67 Year
  Sex: Male

DRUGS (1)
  1. EPOGEN [Suspect]
     Indication: RENAL FAILURE CHRONIC
     Dosage: 1600 UNIT, UNK
     Route: 065

REACTIONS (3)
  - Death [Fatal]
  - Therapy cessation [Unknown]
  - Hypertension [Unknown]
